FAERS Safety Report 25370145 (Version 15)
Quarter: 2025Q4

REPORT INFORMATION
  Report Type: Spontaneous
  Country: US (occurrence: US)
  Receive Date: 20250528
  Receipt Date: 20251201
  Transmission Date: 20260118
  Serious: Yes (Other)
  Sender: PFIZER
  Company Number: US-PFIZER INC-202500097496

PATIENT
  Age: 44 Year
  Sex: Male
  Weight: 88.889 kg

DRUGS (8)
  1. ADCETRIS [Suspect]
     Active Substance: BRENTUXIMAB VEDOTIN
     Dosage: 105 MG, EVERY 28 DAYS (EVERY 4 WEEKS)
     Route: 042
  2. ADCETRIS [Suspect]
     Active Substance: BRENTUXIMAB VEDOTIN
     Dosage: 100 MG, EVERY 28 DAYS
  3. ADCETRIS [Suspect]
     Active Substance: BRENTUXIMAB VEDOTIN
     Dosage: 100 MG, EVERY 2 WEEKS
     Route: 042
  4. ADCETRIS [Suspect]
     Active Substance: BRENTUXIMAB VEDOTIN
     Dosage: 110 MG, EVERY 28 DAYS
  5. ADCETRIS [Suspect]
     Active Substance: BRENTUXIMAB VEDOTIN
     Dosage: 110 MG, EVERY 2 WEEKS
  6. ADCETRIS [Suspect]
     Active Substance: BRENTUXIMAB VEDOTIN
     Dosage: ON DAY 1 AND DAY 15 ON A 28-DAY CYCLE
     Route: 042
  7. ADCETRIS [Suspect]
     Active Substance: BRENTUXIMAB VEDOTIN
     Dosage: INFUSION EVERY 14 DAYS/100MG EVERY 2 WEEKS
     Route: 042
     Dates: start: 20250514
  8. ADCETRIS [Suspect]
     Active Substance: BRENTUXIMAB VEDOTIN
     Dosage: 100 MG Q3W BY IV
     Route: 042
     Dates: start: 202505

REACTIONS (4)
  - Weight fluctuation [Not Recovered/Not Resolved]
  - Pain [Unknown]
  - Off label use [Unknown]
  - Product dose omission issue [Unknown]

NARRATIVE: CASE EVENT DATE: 20250101
